FAERS Safety Report 9968318 (Version 1)
Quarter: 2014Q1

REPORT INFORMATION
  Report Type: Report from Study
  Country: US (occurrence: US)
  Receive Date: 20140306
  Receipt Date: 20140306
  Transmission Date: 20141002
  Serious: No
  Sender: FDA-Public Use
  Company Number: US-ABBVIE-13P-163-1146872-00

PATIENT
  Age: 25 Year
  Sex: Female

DRUGS (3)
  1. HUMIRA [Suspect]
     Indication: PSORIASIS
  2. SPRINTEC [Concomitant]
     Indication: CONTRACEPTION
     Dosage: DAILY
  3. CLARITIN [Concomitant]
     Indication: HYPERSENSITIVITY
     Dosage: 1 A DAY

REACTIONS (2)
  - Limb injury [Recovering/Resolving]
  - Foot fracture [Recovering/Resolving]
